FAERS Safety Report 8589453-5 (Version None)
Quarter: 2012Q3

REPORT INFORMATION
  Report Type: 
  Country: None (occurrence: None)
  Receive Date: 20120813
  Receipt Date: 20120807
  Transmission Date: 20120928
  Serious: Yes (Hospitalization, Disabling, Other)
  Sender: FDA-Public Use
  Company Number: US-009507513-1110USA04475

PATIENT

DRUGS (3)
  1. BONIVA [Suspect]
  2. FOSAMAX [Suspect]
     Indication: OSTEOPOROSIS
     Dosage: 70 MG, UNK
     Route: 048
     Dates: start: 20041028, end: 20050214
  3. ACTONEL [Suspect]

REACTIONS (61)
  - HUMERUS FRACTURE [None]
  - DENTAL PLAQUE [None]
  - FATIGUE [None]
  - LIVER FUNCTION TEST ABNORMAL [None]
  - SINUSITIS [None]
  - OEDEMA PERIPHERAL [None]
  - URINARY TRACT INFECTION [None]
  - EPILEPSY [None]
  - MULTIPLE FRACTURES [None]
  - PEMPHIGUS [None]
  - BACK DISORDER [None]
  - DEPRESSION [None]
  - NECK PAIN [None]
  - OSTEOARTHRITIS [None]
  - SLEEP APNOEA SYNDROME [None]
  - OSTEONECROSIS OF JAW [None]
  - LOW TURNOVER OSTEOPATHY [None]
  - PULPITIS DENTAL [None]
  - MALAISE [None]
  - POLLAKIURIA [None]
  - DRY MOUTH [None]
  - SPINAL FRACTURE [None]
  - BREATH ODOUR [None]
  - DYSGEUSIA [None]
  - PERIODONTAL DISEASE [None]
  - HYPERTROPHY OF TONGUE PAPILLAE [None]
  - ORAL LICHEN PLANUS [None]
  - PEMPHIGOID [None]
  - ARTHROPATHY [None]
  - NASAL SEPTUM DEVIATION [None]
  - RASH [None]
  - CARDIAC FAILURE CONGESTIVE [None]
  - CONVULSION [None]
  - WEIGHT INCREASED [None]
  - GLOSSITIS [None]
  - TOOTH CROWDING [None]
  - ACUTE SINUSITIS [None]
  - ENDOCRINE TEST ABNORMAL [None]
  - DYSURIA [None]
  - DENTAL CARIES [None]
  - ADVERSE EVENT [None]
  - BONE DENSITY DECREASED [None]
  - INTERVERTEBRAL DISC PROTRUSION [None]
  - BLOOD GLUCOSE ABNORMAL [None]
  - CALCIUM METABOLISM DISORDER [None]
  - SENSITIVITY OF TEETH [None]
  - BRUXISM [None]
  - TONGUE HAEMORRHAGE [None]
  - PARANASAL SINUS MUCOSAL HYPERTROPHY [None]
  - BRADYCARDIA [None]
  - EPISTAXIS [None]
  - MUSCULOSKELETAL PAIN [None]
  - ADVERSE DRUG REACTION [None]
  - DRY SKIN [None]
  - ALOPECIA [None]
  - TOOTH DISORDER [None]
  - ANXIETY [None]
  - TOOTHACHE [None]
  - HERPES ZOSTER [None]
  - SLEEP DISORDER [None]
  - DRUG INEFFECTIVE [None]
